FAERS Safety Report 5977736-4 (Version None)
Quarter: 2008Q4

REPORT INFORMATION
  Report Type: 
  Country: None (occurrence: None)
  Receive Date: 20081203
  Receipt Date: 20081125
  Transmission Date: 20090506
  Serious: Yes (Other)
  Sender: FDA-Public Use
  Company Number: US-ASTRAZENECA-2008UW01577

PATIENT
  Age: 67 Year
  Sex: Female
  Weight: 59.9 kg

DRUGS (3)
  1. ARIMIDEX [Suspect]
     Indication: BREAST CANCER
     Route: 048
     Dates: start: 20060101
  2. THYROID TAB [Concomitant]
  3. ACTONEL [Concomitant]

REACTIONS (6)
  - ARTHRITIS [None]
  - ARTHROPATHY [None]
  - BLOOD CHOLESTEROL INCREASED [None]
  - OROPHARYNGEAL PAIN [None]
  - PHARYNGITIS [None]
  - WEIGHT DECREASED [None]
